FAERS Safety Report 13496441 (Version 1)
Quarter: 2017Q2

REPORT INFORMATION
  Report Type: Report from Study
  Country: JP (occurrence: JP)
  Receive Date: 20170428
  Receipt Date: 20170428
  Transmission Date: 20170830
  Serious: Yes (Death, Other)
  Sender: FDA-Public Use
  Company Number: JP-PFIZER INC-2017184225

PATIENT
  Age: 52 Year
  Sex: Male
  Weight: 59.3 kg

DRUGS (8)
  1. FOSPHENYTOIN [Concomitant]
     Active Substance: FOSPHENYTOIN\FOSPHENYTOIN SODIUM
  2. ALEVIATIN [Concomitant]
     Active Substance: PHENYTOIN SODIUM
     Dosage: UNK
     Dates: start: 201210
  3. E KEPPRA [Suspect]
     Active Substance: LEVETIRACETAM
     Dosage: 1000 MG, 2X/DAY
     Route: 048
     Dates: start: 20121106
  4. E KEPPRA [Suspect]
     Active Substance: LEVETIRACETAM
     Indication: PARTIAL SEIZURES WITH SECONDARY GENERALISATION
     Dosage: 250 MG, 2X/DAY
     Route: 048
     Dates: start: 20121024, end: 20121028
  5. METHOTREXATE SODIUM. [Suspect]
     Active Substance: METHOTREXATE SODIUM
     Indication: CENTRAL NERVOUS SYSTEM LYMPHOMA
     Dosage: 6125 MG, DAILY
     Route: 042
     Dates: start: 20121029, end: 20121029
  6. METHOTREXATE SODIUM. [Suspect]
     Active Substance: METHOTREXATE SODIUM
     Dosage: 6125 MG, DAILY
     Route: 042
     Dates: start: 20121114, end: 20121114
  7. METHOTREXATE SODIUM. [Suspect]
     Active Substance: METHOTREXATE SODIUM
     Dosage: 6125 MG, DAILY
     Route: 042
     Dates: start: 20121225, end: 20121225
  8. E KEPPRA [Suspect]
     Active Substance: LEVETIRACETAM
     Indication: FOCAL DYSCOGNITIVE SEIZURES
     Dosage: 500 MG, 2X/DAY
     Route: 048
     Dates: start: 20121029, end: 20121105

REACTIONS (3)
  - Liver disorder [Recovering/Resolving]
  - Central nervous system lymphoma [Fatal]
  - Pancytopenia [Recovering/Resolving]

NARRATIVE: CASE EVENT DATE: 20121122
